FAERS Safety Report 4603853-7 (Version None)
Quarter: 2005Q1

REPORT INFORMATION
  Report Type: 
  Country: None (occurrence: None)
  Receive Date: 20050308
  Receipt Date: 20050223
  Transmission Date: 20050727
  Serious: Yes (Congenital Anomaly)
  Sender: FDA-Public Use
  Company Number: 2005-124826-NL

PATIENT
  Age: 0 Day
  Sex: Female
  Weight: 2.28 kg

DRUGS (1)
  1. NUVARING [Suspect]

REACTIONS (6)
  - APGAR SCORE LOW [None]
  - BONE INFECTION [None]
  - CHROMOSOMAL DELETION [None]
  - CHROMOSOME ABNORMALITY [None]
  - DRUG EXPOSURE DURING PREGNANCY [None]
  - HYPOPLASTIC LEFT HEART SYNDROME [None]
